FAERS Safety Report 10749449 (Version 1)
Quarter: 2015Q1

REPORT INFORMATION
  Report Type: Spontaneous
  Country: IL (occurrence: IL)
  Receive Date: 20150129
  Receipt Date: 20150129
  Transmission Date: 20150721
  Serious: Yes (Hospitalization)
  Sender: FDA-Public Use
  Company Number: IL-ELI_LILLY_AND_COMPANY-US_990826824

PATIENT
  Age: 39 Year
  Sex: Male

DRUGS (2)
  1. CLOTHIAPINE [Concomitant]
     Active Substance: CLOTHIAPINE
     Indication: SCHIZOPHRENIA
     Dosage: 40 MG, AS NEEDED
     Route: 048
  2. ZYPREXA [Suspect]
     Active Substance: OLANZAPINE
     Indication: SCHIZOPHRENIA
     Dosage: 10 MG, DAILY (1/D)
     Route: 048

REACTIONS (2)
  - Rhabdomyolysis [Recovered/Resolved]
  - Psychotic disorder [Unknown]
